FAERS Safety Report 9344701 (Version 1)
Quarter: 2013Q2

REPORT INFORMATION
  Report Type: Spontaneous
  Country: US (occurrence: US)
  Receive Date: 20130612
  Receipt Date: 20130612
  Transmission Date: 20140414
  Serious: Yes (Congenital Anomaly)
  Sender: FDA-Public Use
  Company Number: US-ABBOTT-13P-163-1100783-00

PATIENT
  Sex: Female

DRUGS (1)
  1. DEPAKOTE [Suspect]
     Indication: MATERNAL EXPOSURE TIMING UNSPECIFIED
     Route: 064

REACTIONS (13)
  - Injury [Unknown]
  - Spina bifida [Unknown]
  - Congenital anomaly [Unknown]
  - Deformity [Unknown]
  - Pain [Unknown]
  - Neural tube defect [Unknown]
  - Heart disease congenital [Unknown]
  - Tension [Unknown]
  - Anhedonia [Unknown]
  - Feeling guilty [Unknown]
  - Foetal exposure during pregnancy [Unknown]
  - Feeling abnormal [Unknown]
  - Emotional distress [Unknown]
